FAERS Safety Report 11584798 (Version 1)
Quarter: 2015Q4

REPORT INFORMATION
  Report Type: Spontaneous
  Country: US (occurrence: US)
  Receive Date: 20151001
  Receipt Date: 20151001
  Transmission Date: 20160304
  Serious: No
  Sender: FDA-Public Use
  Company Number: US-JNJFOC-20150900886

PATIENT

DRUGS (1)
  1. HALOPERIDOL. [Suspect]
     Active Substance: HALOPERIDOL
     Indication: MIGRAINE
     Route: 042

REACTIONS (6)
  - Nausea [Unknown]
  - Chest pain [Unknown]
  - Agitation [Unknown]
  - Product use issue [Unknown]
  - Restlessness [Unknown]
  - Somnolence [Unknown]
